FAERS Safety Report 23671103 (Version 1)
Quarter: 2024Q1

REPORT INFORMATION
  Report Type: Spontaneous
  Country: US (occurrence: US)
  Receive Date: 20240326
  Receipt Date: 20240326
  Transmission Date: 20240409
  Serious: Yes (Hospitalization)
  Sender: FDA-Public Use
  Company Number: US-AMGEN-USASP2024058046

PATIENT
  Age: 82 Year
  Sex: Female

DRUGS (2)
  1. SOTORASIB [Suspect]
     Active Substance: SOTORASIB
     Indication: Lung cancer metastatic
     Dosage: 960 MILLIGRAM, QD (120 MG 8 TABLETS)
     Route: 065
  2. SOTORASIB [Suspect]
     Active Substance: SOTORASIB
     Indication: Lung carcinoma cell type unspecified stage IV

REACTIONS (2)
  - Acute hepatic failure [Recovering/Resolving]
  - Dyspnoea [Recovering/Resolving]
